FAERS Safety Report 4667180-4 (Version None)
Quarter: 2005Q2

REPORT INFORMATION
  Report Type: 
  Country: None (occurrence: None)
  Receive Date: 20050520
  Receipt Date: 20050323
  Transmission Date: 20051028
  Serious: No
  Sender: FDA-Public Use
  Company Number: AU-JNJFOC-20050307640

PATIENT
  Sex: Male
  Weight: 46 kg

DRUGS (1)
  1. REMICADE [Suspect]
     Route: 042

REACTIONS (2)
  - ASTHMA [None]
  - INFUSION RELATED REACTION [None]
